FAERS Safety Report 14142314 (Version 2)
Quarter: 2018Q1

REPORT INFORMATION
  Report Type: Spontaneous
  Country: DE (occurrence: DE)
  Receive Date: 20171030
  Receipt Date: 20180308
  Transmission Date: 20180508
  Serious: Yes (Other)
  Sender: FDA-Public Use
  Company Number: DE-BTG INTERNATIONAL LTD-2017BTG01393

PATIENT
  Age: 56 Year
  Sex: Male

DRUGS (3)
  1. METHOTREXATE. [Suspect]
     Active Substance: METHOTREXATE
     Indication: CENTRAL NERVOUS SYSTEM LYMPHOMA
     Dosage: 8 MG/M2, UNK
  2. LEUCOVORIN. [Suspect]
     Active Substance: LEUCOVORIN
     Indication: TOXICITY TO VARIOUS AGENTS
     Dosage: 500 MG, EVERY 6H
     Route: 065
  3. VORAXAZE [Suspect]
     Active Substance: GLUCARPIDASE
     Indication: TOXICITY TO VARIOUS AGENTS
     Dosage: 25 U/KG OVER 5 MIN
     Route: 042

REACTIONS (2)
  - Drug eruption [Recovered/Resolved]
  - Prescribed underdose [Unknown]
